FAERS Safety Report 24980536 (Version 1)
Quarter: 2025Q1

REPORT INFORMATION
  Report Type: Spontaneous
  Country: US (occurrence: None)
  Receive Date: 20250214
  Receipt Date: 20250214
  Transmission Date: 20250408
  Serious: Yes (Disabling, Other)
  Sender: FDA-CTU
  Company Number: None

PATIENT
  Sex: Male
  Weight: 90.9 kg

DRUGS (2)
  1. REPATHA [Suspect]
     Active Substance: EVOLOCUMAB
     Indication: Blood cholesterol increased
     Dates: start: 20211201, end: 20240509
  2. Jantoven 9.5mg per day [Concomitant]

REACTIONS (4)
  - Tendonitis [None]
  - Plantar fasciitis [None]
  - Joint swelling [None]
  - Glucose tolerance impaired [None]
